FAERS Safety Report 16844565 (Version 3)
Quarter: 2020Q4

REPORT INFORMATION
  Report Type: Spontaneous
  Country: US (occurrence: US)
  Receive Date: 20190924
  Receipt Date: 20201012
  Transmission Date: 20210113
  Serious: Yes (Other)
  Sender: FDA-Public Use
  Company Number: US-GILEAD-2019-0429379

PATIENT
  Sex: Male
  Weight: 90.7 kg

DRUGS (57)
  1. TRUVADA [Suspect]
     Active Substance: EMTRICITABINE\TENOFOVIR DISOPROXIL FUMARATE
     Indication: HIV INFECTION
     Dosage: UNK
     Route: 048
     Dates: end: 20080502
  2. ESTRADIOL. [Concomitant]
     Active Substance: ESTRADIOL
  3. OMEPRAZOLE. [Concomitant]
     Active Substance: OMEPRAZOLE
  4. PROCHLORPERAZINE. [Concomitant]
     Active Substance: PROCHLORPERAZINE
  5. PROTONIX [OMEPRAZOLE] [Concomitant]
     Active Substance: OMEPRAZOLE
  6. TEMAZEPAM. [Concomitant]
     Active Substance: TEMAZEPAM
  7. VITAMIN D3 [Concomitant]
     Active Substance: CHOLECALCIFEROL
  8. FLUCONAZOLE. [Concomitant]
     Active Substance: FLUCONAZOLE
  9. METHYLPHENIDATE. [Concomitant]
     Active Substance: METHYLPHENIDATE
  10. SULFAMETHOXAZOLE [Concomitant]
     Active Substance: SULFAMETHOXAZOLE
  11. WARFARIN [Concomitant]
     Active Substance: WARFARIN
  12. ATRIPLA [Suspect]
     Active Substance: EFAVIRENZ\EMTRICITABINE\TENOFOVIR DISOPROXIL FUMARATE
     Indication: HIV INFECTION
     Dosage: UNK
     Route: 048
     Dates: start: 20080801, end: 20111125
  13. CALCIUM [Concomitant]
     Active Substance: CALCIUM
  14. CRIXIVAN [Concomitant]
     Active Substance: INDINAVIR SULFATE
  15. ASPIRIN [ACETYLSALICYLIC ACID] [Concomitant]
     Active Substance: ASPIRIN
  16. AXIRON [Concomitant]
     Active Substance: TESTOSTERONE
  17. BISACODYL. [Concomitant]
     Active Substance: BISACODYL
  18. CLONAZEPAM. [Concomitant]
     Active Substance: CLONAZEPAM
  19. LEVOXYL [Concomitant]
     Active Substance: LEVOTHYROXINE SODIUM
  20. METANX [Concomitant]
     Active Substance: LEVOMEFOLATE CALCIUM\METHYLCOBALAMIN\PYRIDOXAL PHOSPHATE ANHYDROUS
  21. SIMVASTATIN. [Concomitant]
     Active Substance: SIMVASTATIN
  22. VIREAD [Suspect]
     Active Substance: TENOFOVIR DISOPROXIL FUMARATE
     Indication: HIV INFECTION
     Dosage: UNK
     Route: 048
     Dates: start: 2011, end: 2014
  23. ADDERALL [Concomitant]
     Active Substance: AMPHETAMINE ASPARTATE\AMPHETAMINE SULFATE\DEXTROAMPHETAMINE SACCHARATE\DEXTROAMPHETAMINE SULFATE
  24. DOCUSATE SODIUM. [Concomitant]
     Active Substance: DOCUSATE SODIUM
  25. FENTANYL. [Concomitant]
     Active Substance: FENTANYL
  26. QUETIAPINE FUMARATE. [Concomitant]
     Active Substance: QUETIAPINE FUMARATE
  27. JULUCA [Concomitant]
     Active Substance: DOLUTEGRAVIR SODIUM\RILPIVIRINE HYDROCHLORIDE
  28. NORVIR [Concomitant]
     Active Substance: RITONAVIR
  29. REYATAZ [Concomitant]
     Active Substance: ATAZANAVIR SULFATE
  30. AVANDIA [Concomitant]
     Active Substance: ROSIGLITAZONE MALEATE
  31. CHANTIX [Concomitant]
     Active Substance: VARENICLINE TARTRATE
  32. CYMBALTA [Concomitant]
     Active Substance: DULOXETINE HYDROCHLORIDE
  33. NOVOLOG [Concomitant]
     Active Substance: INSULIN ASPART
  34. POLYETHYLENE GLYCOL COMPOUND [Concomitant]
  35. PRILOSEC [Concomitant]
     Active Substance: OMEPRAZOLE MAGNESIUM
  36. VALACYCLOVIR [Concomitant]
     Active Substance: VALACYCLOVIR HYDROCHLORIDE
  37. DEXTROAMPHETAMINE [DEXAMFETAMINE] [Concomitant]
     Active Substance: DEXTROAMPHETAMINE
  38. LIPITOR [Concomitant]
     Active Substance: ATORVASTATIN CALCIUM
  39. ONDANSETRON [Concomitant]
     Active Substance: ONDANSETRON
  40. SENEXON-S [Concomitant]
     Active Substance: DOCUSATE SODIUM\SENNOSIDES A AND B
  41. EDURANT [Concomitant]
     Active Substance: RILPIVIRINE HYDROCHLORIDE
  42. DULOXETINE. [Concomitant]
     Active Substance: DULOXETINE
  43. OXYCODONE [Concomitant]
     Active Substance: OXYCODONE
  44. SENNA S [Concomitant]
     Active Substance: DOCUSATE SODIUM\SENNA LEAF
  45. SERTRALINE [Concomitant]
     Active Substance: SERTRALINE HYDROCHLORIDE
  46. VALTREX [Concomitant]
     Active Substance: VALACYCLOVIR HYDROCHLORIDE
  47. ZOLPIDEM [Concomitant]
     Active Substance: ZOLPIDEM TARTRATE
  48. TIVICAY [Concomitant]
     Active Substance: DOLUTEGRAVIR SODIUM
  49. TRIUMEQ [Concomitant]
     Active Substance: ABACAVIR SULFATE\DOLUTEGRAVIR SODIUM\LAMIVUDINE
  50. AZITHROMYCIN ANHYDROUS. [Concomitant]
     Active Substance: AZITHROMYCIN ANHYDROUS
  51. CLOBETASOL [Concomitant]
     Active Substance: CLOBETASOL
  52. GABAPENTIN. [Concomitant]
     Active Substance: GABAPENTIN
  53. LANTUS [Concomitant]
     Active Substance: INSULIN GLARGINE
  54. LEVOTHYROXINE. [Concomitant]
     Active Substance: LEVOTHYROXINE
  55. MORPHINE [Concomitant]
     Active Substance: MORPHINE
  56. TOPIRAMATE. [Concomitant]
     Active Substance: TOPIRAMATE
  57. TRICOR [ADENOSINE] [Concomitant]
     Active Substance: ADENOSINE

REACTIONS (11)
  - Anhedonia [Not Recovered/Not Resolved]
  - Economic problem [Not Recovered/Not Resolved]
  - Upper limb fracture [Unknown]
  - Loss of personal independence in daily activities [Unknown]
  - Quality of life decreased [Unknown]
  - Osteopenia [Not Recovered/Not Resolved]
  - Emotional distress [Not Recovered/Not Resolved]
  - Pain [Not Recovered/Not Resolved]
  - Anxiety [Not Recovered/Not Resolved]
  - Osteoporosis [Not Recovered/Not Resolved]
  - Decreased activity [Unknown]

NARRATIVE: CASE EVENT DATE: 2009
